FAERS Safety Report 8901159 (Version 1)
Quarter: 2012Q4

REPORT INFORMATION
  Report Type: Report from Study
  Country: CA (occurrence: CA)
  Receive Date: 20121109
  Receipt Date: 20121109
  Transmission Date: 20130627
  Serious: Yes (Hospitalization)
  Sender: FDA-Public Use
  Company Number: CA-ROCHE-1142827

PATIENT
  Age: 42 Year
  Sex: Female

DRUGS (6)
  1. CAPECITABINE [Suspect]
     Indication: GASTRIC CANCER
     Route: 048
     Dates: start: 20120421, end: 20121001
  2. OXALIPLATIN [Suspect]
     Indication: GASTRIC CANCER
     Route: 042
     Dates: start: 20120420, end: 20120917
  3. IRINOTECAN [Suspect]
     Indication: GASTRIC CANCER
     Route: 042
     Dates: start: 20120420, end: 20120917
  4. ZOPICLONE [Concomitant]
     Indication: INSOMNIA
     Route: 048
     Dates: start: 20120101
  5. NEXIUM [Concomitant]
     Route: 048
     Dates: start: 200506
  6. TYLENOL [Concomitant]
     Indication: PAIN
     Route: 065
     Dates: start: 20120902

REACTIONS (2)
  - Pancreatitis [Recovered/Resolved]
  - Ascites [Recovered/Resolved]
